FAERS Safety Report 13246631 (Version 1)
Quarter: 2017Q1

REPORT INFORMATION
  Report Type: Spontaneous
  Country: CH (occurrence: CH)
  Receive Date: 20170217
  Receipt Date: 20170217
  Transmission Date: 20170428
  Serious: Yes (Death, Other)
  Sender: FDA-Public Use
  Company Number: CH-TEVA-740015ISR

PATIENT
  Age: 33 Year
  Sex: Female

DRUGS (6)
  1. IRFEN [Suspect]
     Active Substance: IBUPROFEN
     Indication: HEADACHE
     Route: 048
     Dates: start: 20170125
  2. FORTECORTIN [Concomitant]
     Active Substance: DEXAMETHASONE
     Dates: start: 2016
  3. APYDAN [Suspect]
     Active Substance: OXCARBAZEPINE
     Indication: SEIZURE
     Route: 048
  4. OPDIVO [Suspect]
     Active Substance: NIVOLUMAB
     Indication: NEUROENDOCRINE CARCINOMA METASTATIC
     Route: 041
  5. DAFALGAN [Suspect]
     Active Substance: ACETAMINOPHEN
     Indication: HEADACHE
     Route: 048
  6. FRAGMIN [Suspect]
     Active Substance: DALTEPARIN SODIUM
     Indication: THROMBOSIS PROPHYLAXIS
     Route: 058

REACTIONS (4)
  - Body surface area [Unknown]
  - Post procedural haemorrhage [Unknown]
  - Autoimmune hepatitis [Fatal]
  - Resuscitation [Fatal]

NARRATIVE: CASE EVENT DATE: 20170126
